FAERS Safety Report 7259615-8 (Version None)
Quarter: 2011Q1

REPORT INFORMATION
  Report Type: 
  Country: None (occurrence: None)
  Receive Date: 20110130
  Receipt Date: 20101006
  Transmission Date: 20110831
  Serious: No
  Sender: FDA-Public Use
  Company Number: US-ABBOTT-10P-163-0628676-00

PATIENT
  Sex: Female
  Weight: 62.198 kg

DRUGS (6)
  1. FOLIC ACID [Concomitant]
     Indication: PRODUCT USED FOR UNKNOWN INDICATION
     Route: 048
  2. AMATIZA [Concomitant]
     Indication: CONSTIPATION
     Dosage: DAILY AS NEEDED
  3. HUMIRA [Suspect]
     Indication: PSORIASIS
     Dates: start: 20100412
  4. KRISTALOSE [Concomitant]
     Indication: CONSTIPATION
     Dosage: DAILY
  5. ZYRTEC [Concomitant]
     Indication: HYPERSENSITIVITY
     Dosage: DAILY
  6. BACLOFEN [Concomitant]
     Indication: MUSCLE SPASMS

REACTIONS (5)
  - NAUSEA [None]
  - INCORRECT DRUG ADMINISTRATION DURATION [None]
  - DRY SKIN [None]
  - PAIN IN EXTREMITY [None]
  - DIZZINESS [None]
